FAERS Safety Report 6852310-6 (Version None)
Quarter: 2010Q3

REPORT INFORMATION
  Report Type: 
  Country: None (occurrence: None)
  Receive Date: 20100717
  Receipt Date: 20071111
  Transmission Date: 20110219
  Serious: No
  Sender: FDA-Public Use
  Company Number: US-PFIZER INC-2007096468

PATIENT
  Sex: Female

DRUGS (4)
  1. CHANTIX [Suspect]
     Indication: SMOKING CESSATION THERAPY
     Route: 048
     Dates: start: 20071104
  2. DIURETICS [Concomitant]
  3. XANAX [Concomitant]
  4. LISINOPRIL [Concomitant]

REACTIONS (3)
  - FLATULENCE [None]
  - VISION BLURRED [None]
  - VOMITING [None]
